FAERS Safety Report 16228067 (Version 6)
Quarter: 2020Q3

REPORT INFORMATION
  Report Type: Spontaneous
  Country: FR (occurrence: FR)
  Receive Date: 20190423
  Receipt Date: 20200817
  Transmission Date: 20201102
  Serious: Yes (Death, Other)
  Sender: FDA-Public Use
  Company Number: FR-PFIZER INC-2019172471

PATIENT
  Age: 83 Year
  Sex: Male
  Weight: 79 kg

DRUGS (10)
  1. ELIQUIS [Suspect]
     Active Substance: APIXABAN
     Indication: MYOCARDIAL ISCHAEMIA
     Dosage: 10 MG, 1X/DAY (2 DOSAGE FORMS DAILY)
     Route: 048
     Dates: start: 201901
  2. DOLIPRANE [Suspect]
     Active Substance: ACETAMINOPHEN
     Indication: PAIN
     Dosage: 3000 MG, 1X/DAY
     Route: 048
     Dates: start: 201901
  3. CIPROFLOXACINE [CIPROFLOXACIN] [Suspect]
     Active Substance: CIPROFLOXACIN
     Indication: INFECTION
     Dosage: UNK (1 TABLET 2 / D THEN 0.5 TABLET 2 / D), DAILY
     Route: 048
     Dates: start: 20190322, end: 20190329
  4. BISOPROLOL HEMIFUMARATE [Suspect]
     Active Substance: BISOPROLOL FUMARATE
     Indication: HYPERTENSION
     Dosage: 3 DF, QD
     Route: 048
     Dates: start: 201901
  5. CORDARONE [Suspect]
     Active Substance: AMIODARONE HYDROCHLORIDE
     Indication: MYOCARDIAL ISCHAEMIA
     Dosage: 200 MG, 1X/DAY
     Route: 048
     Dates: start: 201901
  6. PANTOPRAZOLE [Suspect]
     Active Substance: PANTOPRAZOLE
     Indication: ULCER HAEMORRHAGE
     Dosage: 1 DF, DAILY
     Route: 048
     Dates: start: 201901
  7. ZAMUDOL [Suspect]
     Active Substance: TRAMADOL HYDROCHLORIDE
     Indication: PAIN
     Dosage: 2 DF, 1X/DAY
     Route: 048
     Dates: start: 201901
  8. BISOCE [Suspect]
     Active Substance: BISOPROLOL
     Indication: HYPERTENSION
     Dosage: 7.5 MG, 1X/DAY
     Route: 048
     Dates: start: 201901
  9. KARDEGIC [Suspect]
     Active Substance: ASPIRIN DL-LYSINE
     Indication: MYOCARDIAL ISCHAEMIA
     Dosage: 75 MG, 1X/DAY
     Route: 048
     Dates: start: 201901
  10. ATORVASTATINE PFIZER [Suspect]
     Active Substance: ATORVASTATIN
     Indication: MYOCARDIAL ISCHAEMIA
     Dosage: 2 DF, 1X/DAY
     Route: 048
     Dates: start: 201901

REACTIONS (7)
  - Product use in unapproved indication [Unknown]
  - Off label use [Unknown]
  - Rectal haemorrhage [Fatal]
  - Gastric haemorrhage [Fatal]
  - Shock haemorrhagic [Fatal]
  - Gastric ulcer perforation [Fatal]
  - Failure to suspend medication [Unknown]

NARRATIVE: CASE EVENT DATE: 201902
